FAERS Safety Report 16163744 (Version 3)
Quarter: 2019Q2

REPORT INFORMATION
  Report Type: Spontaneous
  Country: CA (occurrence: CA)
  Receive Date: 20190405
  Receipt Date: 20190416
  Transmission Date: 20190711
  Serious: Yes (Death)
  Sender: FDA-Public Use
  Company Number: CA-PFIZER INC-CA-WYE-H02024208

PATIENT
  Age: 48 Year
  Sex: Male

DRUGS (10)
  1. CLONAZEPAM. [Concomitant]
     Active Substance: CLONAZEPAM
     Route: 048
  2. ACETAMINOPHEN AND CODEINE [Interacting]
     Active Substance: ACETAMINOPHEN\CODEINE PHOSPHATE
     Dosage: ACETAMINOPHEN TABLETS WITH 30 MG AND 60 MG OF CODEINE
     Route: 065
  3. MORPHINE [Concomitant]
     Active Substance: MORPHINE
     Route: 065
  4. ATIVAN [Suspect]
     Active Substance: LORAZEPAM
     Dosage: UNK
     Route: 048
  5. ACETAMINOPHEN AND CODEINE [Interacting]
     Active Substance: ACETAMINOPHEN\CODEINE PHOSPHATE
     Dosage: ACETAMINOPHEN TABLETS WITH 30 MG AND 60 MG OF CODEINE
     Route: 065
  6. BISACODYL. [Concomitant]
     Active Substance: BISACODYL
     Dosage: UNK
     Route: 065
  7. ACETAMINOPHEN AND CODEINE [Interacting]
     Active Substance: ACETAMINOPHEN\CODEINE PHOSPHATE
     Indication: ANKLE FRACTURE
     Dosage: UNK
     Route: 048
  8. LONARID [AMOBARBITAL;CAFFEINE;CODEINE PHOSPHATE;OCTIBENZONIUM BROMIDE; [Interacting]
     Active Substance: ACETAMINOPHEN\AMOBARBITAL\CAFFEINE\CODEINE\OCTIBENZONIUM
     Route: 048
  9. CODEINE [Interacting]
     Active Substance: CODEINE
     Indication: ANKLE FRACTURE
     Dosage: 30 MG AND 60 MG
     Route: 048
  10. SERTRALINE HCL [Interacting]
     Active Substance: SERTRALINE HYDROCHLORIDE
     Dosage: UNKNOWN
     Route: 048

REACTIONS (8)
  - Serotonin syndrome [Fatal]
  - Drug level increased [Fatal]
  - Accidental overdose [Fatal]
  - Pulmonary oedema [Fatal]
  - Respiratory depression [Fatal]
  - Hypoventilation [Fatal]
  - Drug interaction [Fatal]
  - Toxicity to various agents [Fatal]
